FAERS Safety Report 5114250-2 (Version None)
Quarter: 2006Q3

REPORT INFORMATION
  Report Type: 
  Country: None (occurrence: None)
  Receive Date: 20060925
  Receipt Date: 20060914
  Transmission Date: 20061208
  Serious: Yes (Hospitalization)
  Sender: FDA-Public Use
  Company Number: FR-BOEHRINGER INGELHEIM PHARMACEUTICALS, INC.-2006-FF-00896PF

PATIENT
  Age: 74 Year
  Sex: Male

DRUGS (3)
  1. SPIRIVA [Suspect]
     Indication: CHRONIC OBSTRUCTIVE PULMONARY DISEASE
     Route: 055
     Dates: start: 20060718
  2. ATARAX [Concomitant]
     Indication: PREMEDICATION
     Route: 048
     Dates: start: 20060806, end: 20060808
  3. CLARITIN [Concomitant]
     Indication: PREMEDICATION
     Route: 048
     Dates: start: 20060806, end: 20060808

REACTIONS (2)
  - RASH [None]
  - RASH PUSTULAR [None]
